FAERS Safety Report 9249968 (Version 2)
Quarter: 2013Q2

REPORT INFORMATION
  Report Type: Report from Study
  Country: GB (occurrence: GB)
  Receive Date: 20130424
  Receipt Date: 20130425
  Transmission Date: 20140414
  Serious: Yes (Other)
  Sender: FDA-Public Use
  Company Number: GB-ROCHE-1216594

PATIENT
  Sex: 0

DRUGS (4)
  1. BEVACIZUMAB [Suspect]
     Indication: MALIGNANT MELANOMA
     Dosage: LAST INFUSION PRIOR TO SAE; 19/JAN/2009 (705 MG)
     Route: 065
     Dates: start: 20090119
  2. CODEINE PHOSPHATE [Concomitant]
     Indication: PAIN
     Route: 065
     Dates: start: 200811
  3. DOSULEPIN [Concomitant]
     Indication: DEPRESSION
     Route: 065
     Dates: start: 20081228, end: 20090302
  4. CETRIZINE [Concomitant]
     Route: 065
     Dates: start: 20081124

REACTIONS (1)
  - Migraine [Not Recovered/Not Resolved]
